FAERS Safety Report 9911445 (Version 1)
Quarter: 2014Q1

REPORT INFORMATION
  Report Type: Report from Study
  Country: US (occurrence: US)
  Receive Date: 20140219
  Receipt Date: 20140219
  Transmission Date: 20141002
  Serious: Yes (Hospitalization)
  Sender: FDA-Public Use
  Company Number: PHEH2014US003150

PATIENT
  Sex: Male

DRUGS (1)
  1. AFINITOR [Suspect]
     Indication: RENAL NEOPLASM
     Dosage: 10 MG, DAILY
     Route: 048
     Dates: start: 20140207, end: 20140210

REACTIONS (2)
  - Blood test abnormal [Unknown]
  - Dyspnoea [Unknown]
